FAERS Safety Report 10133629 (Version 1)
Quarter: 2014Q2

REPORT INFORMATION
  Report Type: Spontaneous
  Country: CN (occurrence: CN)
  Receive Date: 20140428
  Receipt Date: 20140428
  Transmission Date: 20141212
  Serious: Yes (Life-Threatening, Hospitalization, Other)
  Sender: FDA-Public Use
  Company Number: CN-ACTAVIS-2014-08104

PATIENT
  Age: 50 Year
  Sex: Female
  Weight: 48 kg

DRUGS (2)
  1. DULOXETINE (UNKNOWN) [Suspect]
     Indication: MAJOR DEPRESSION
     Dosage: 60 MG, DAILY
     Route: 065
  2. ZIPRASIDONE [Suspect]
     Indication: MAJOR DEPRESSION
     Dosage: 40 MG, QPM
     Route: 065

REACTIONS (7)
  - Inappropriate antidiuretic hormone secretion [Recovered/Resolved]
  - Generalised tonic-clonic seizure [Recovered/Resolved]
  - Coma [Recovered/Resolved]
  - Rhabdomyolysis [Recovered/Resolved]
  - Dry mouth [Unknown]
  - Polydipsia [Recovered/Resolved]
  - Polyuria [Recovered/Resolved]
